FAERS Safety Report 8190299-0 (Version None)
Quarter: 2012Q1

REPORT INFORMATION
  Report Type: 
  Country: None (occurrence: None)
  Receive Date: 20120305
  Receipt Date: 20120222
  Transmission Date: 20120608
  Serious: Yes (Hospitalization)
  Sender: FDA-Public Use
  Company Number: 1203066

PATIENT
  Age: 54 Year
  Sex: Male
  Weight: 119 kg

DRUGS (6)
  1. ACYCLOVIR SODIUM [Suspect]
     Indication: CHRONIC LYMPHOCYTIC LEUKAEMIA
     Dosage: 100 MG MWF CYCLE 1, THEN 878 D1 CYCLE 2-6
     Dates: start: 20110314, end: 20110802
  2. CYTOXAN [Suspect]
     Indication: CHRONIC LYMPHOCYTIC LEUKAEMIA
     Dosage: 1404 MG ON D1 C1-6, WKS 1, 5, 9, 13, 17 AND 21, INTRAVENOUS (NOT OTHERWISE SPECIFIED)
     Route: 042
     Dates: start: 20110314, end: 20110802
  3. CAMPATH [Suspect]
     Indication: CHRONIC LYMPHOCYTIC LEUKAEMIA
     Dosage: 30 MG, TIW X 4 WEEKS, SUBCUTANEOUS
     Route: 058
     Dates: start: 20111031, end: 20111125
  4. BACTRIM DS [Concomitant]
  5. ACYCLOVIR [Concomitant]
  6. NIPENT [Suspect]
     Indication: CHRONIC LYMPHOCYTIC LEUKAEMIA
     Dosage: 9.36 MG ON DAY 1 C1-6, INTRAVENOUS (NOT OTHERWISE SPECIFIED)
     Route: 042
     Dates: start: 20110314, end: 20110802

REACTIONS (5)
  - NASOPHARYNGITIS [None]
  - OROPHARYNGEAL PAIN [None]
  - DYSPNOEA [None]
  - COUGH [None]
  - PYREXIA [None]
